FAERS Safety Report 4614290-3 (Version None)
Quarter: 2005Q1

REPORT INFORMATION
  Report Type: 
  Country: None (occurrence: None)
  Receive Date: 20050315
  Receipt Date: 20050225
  Transmission Date: 20050727
  Serious: Yes (Hospitalization)
  Sender: FDA-Public Use
  Company Number: US_0502111957

PATIENT
  Age: 45 Year
  Sex: Female
  Weight: 64 kg

DRUGS (8)
  1. ZYPREXA [Suspect]
     Dosage: 20 MG
     Dates: start: 20000301, end: 20010101
  2. SYMBYAX [Concomitant]
  3. ALPRAZOLAM [Concomitant]
  4. WELLBUTRIN [Concomitant]
  5. PAXIL [Concomitant]
  6. TRAZADONE (TRAZODONE) [Concomitant]
  7. AMARYL [Concomitant]
  8. TENORMIN (ATENOLOL EG) [Concomitant]

REACTIONS (3)
  - CYSTOCELE [None]
  - RECTOCELE [None]
  - URINARY INCONTINENCE [None]
